FAERS Safety Report 7237158-5 (Version None)
Quarter: 2011Q1

REPORT INFORMATION
  Report Type: 
  Country: None (occurrence: None)
  Receive Date: 20110121
  Receipt Date: 20101008
  Transmission Date: 20110831
  Serious: Yes (Other)
  Sender: FDA-Public Use
  Company Number: NL-RANBAXY-2010R1-40273

PATIENT
  Age: 84 Year
  Sex: Female

DRUGS (2)
  1. PARACETAMOL [Suspect]
     Indication: PAIN
     Dosage: 1000 MG, UNK
     Route: 065
  2. TRAMADOL HCL [Concomitant]
     Indication: PRODUCT USED FOR UNKNOWN INDICATION
     Dosage: UNK
     Route: 065

REACTIONS (5)
  - FATIGUE [None]
  - DECREASED APPETITE [None]
  - METABOLIC ACIDOSIS [None]
  - HAEMATOMA [None]
  - FALL [None]
